FAERS Safety Report 9382800 (Version 2)
Quarter: 2013Q4

REPORT INFORMATION
  Report Type: Spontaneous
  Country: GB (occurrence: GB)
  Receive Date: 20130703
  Receipt Date: 20131028
  Transmission Date: 20140711
  Serious: Yes (Other)
  Sender: FDA-Public Use
  Company Number: GB-UCBSA-090307

PATIENT
  Age: 70 Year
  Sex: Female

DRUGS (9)
  1. LEVETIRACETAM [Suspect]
     Indication: CONVULSION
     Dates: start: 20130504, end: 20130604
  2. CLOTRIMAZOLE [Concomitant]
     Indication: CANDIDA INFECTION
     Dosage: DOSE: 1DF
     Route: 061
  3. DEXAMETHASONE [Concomitant]
     Indication: BRAIN OEDEMA
     Dosage: DOSE: 4MG
  4. ENOXAPARIN [Concomitant]
     Indication: PULMONARY EMBOLISM
     Dosage: DOSE: 80MG
     Route: 058
  5. GENTAMICIN [Concomitant]
  6. MEROPENEM [Concomitant]
  7. NYSTATIN [Concomitant]
     Indication: CANDIDA INFECTION
     Dosage: DOSE:100000IU
     Route: 048
  8. PHENYTOIN [Concomitant]
     Indication: CONVULSION
  9. TAZOCIN [Concomitant]

REACTIONS (1)
  - Neutropenia [Recovering/Resolving]
